FAERS Safety Report 4698532-4 (Version None)
Quarter: 2005Q2

REPORT INFORMATION
  Report Type: 
  Country: None (occurrence: None)
  Receive Date: 20050622
  Receipt Date: 20050610
  Transmission Date: 20051028
  Serious: Yes (Other)
  Sender: FDA-Public Use
  Company Number: 2005080655

PATIENT
  Sex: Female
  Weight: 63.5036 kg

DRUGS (7)
  1. CELEBREX [Suspect]
     Indication: ILL-DEFINED DISORDER
     Dosage: 200 MG (200 MG, 1 IN 1 D) ORAL
     Route: 048
     Dates: end: 20050101
  2. LIPITOR [Concomitant]
  3. FOSAMAX [Concomitant]
  4. NORVASC [Concomitant]
  5. LLEVOTHROID (LEVOTHYROXINE SODIUM) [Concomitant]
  6. TIMOLOL MALEATE [Concomitant]
  7. XALATAN [Concomitant]

REACTIONS (2)
  - BODY HEIGHT DECREASED [None]
  - MACULAR DEGENERATION [None]
